FAERS Safety Report 9774818 (Version 1)
Quarter: 2013Q4

REPORT INFORMATION
  Report Type: Spontaneous
  Country: AT (occurrence: AT)
  Receive Date: 20131220
  Receipt Date: 20131220
  Transmission Date: 20140711
  Serious: Yes (Other)
  Sender: FDA-Public Use
  Company Number: AT-ASTRAZENECA-2013SE91350

PATIENT
  Age: 65 Year
  Sex: Female

DRUGS (6)
  1. CRESTOR [Suspect]
     Route: 048
  2. CRESTOR [Suspect]
     Route: 048
     Dates: end: 201309
  3. CODIOVAN [Concomitant]
  4. DANCOR [Concomitant]
  5. PLAVIX [Concomitant]
  6. EXFORGE [Concomitant]

REACTIONS (5)
  - Diplegia [Recovering/Resolving]
  - Sensory loss [Recovering/Resolving]
  - Blue toe syndrome [Recovering/Resolving]
  - Muscle spasms [Recovering/Resolving]
  - Hypoaesthesia [Recovering/Resolving]
